FAERS Safety Report 13970154 (Version 2)
Quarter: 2017Q3

REPORT INFORMATION
  Report Type: Spontaneous
  Country: FR (occurrence: FR)
  Receive Date: 20170914
  Receipt Date: 20170921
  Transmission Date: 20171128
  Serious: Yes (Hospitalization, Other)
  Sender: FDA-Public Use
  Company Number: FR-ASTRAZENECA-2017SE93101

PATIENT
  Age: 26702 Day
  Sex: Female

DRUGS (9)
  1. TEMODAL [Suspect]
     Active Substance: TEMOZOLOMIDE
     Indication: GLIOBLASTOMA
     Route: 048
  2. MEDROL [Suspect]
     Active Substance: METHYLPREDNISOLONE
     Indication: GLIOBLASTOMA
     Route: 048
  3. URBANYL [Suspect]
     Active Substance: CLOBAZAM
     Indication: CONVULSION PROPHYLAXIS
     Dosage: 5.0MG UNKNOWN
     Route: 048
  4. KEPPRA [Suspect]
     Active Substance: LEVETIRACETAM
     Indication: CONVULSION PROPHYLAXIS
     Dosage: 500 MG TWO TIMES A DAY MORNING AND EVENING
     Route: 048
     Dates: start: 2017
  5. PRIMPERAN [Suspect]
     Active Substance: METOCLOPRAMIDE HYDROCHLORIDE
     Indication: ANTIEMETIC SUPPORTIVE CARE
     Dosage: 10.0MG UNKNOWN
     Route: 048
  6. FUNGIZONE [Concomitant]
     Active Substance: AMPHOTERICIN B
     Dosage: MOUTH WASH
  7. SODIUM BICARBONATE. [Concomitant]
     Active Substance: SODIUM BICARBONATE
     Dosage: MOUTH WASH
  8. INEXIUM [Suspect]
     Active Substance: ESOMEPRAZOLE
     Indication: PROPHYLAXIS AGAINST GASTROINTESTINAL ULCER
     Dosage: 20.0MG UNKNOWN
     Route: 048
  9. MEDROL [Suspect]
     Active Substance: METHYLPREDNISOLONE
     Indication: GLIOBLASTOMA
     Route: 048
     Dates: end: 20170605

REACTIONS (2)
  - Type 2 diabetes mellitus [Not Recovered/Not Resolved]
  - Escherichia pyelonephritis [Unknown]

NARRATIVE: CASE EVENT DATE: 20170606
